FAERS Safety Report 5759847-1 (Version None)
Quarter: 2008Q2

REPORT INFORMATION
  Report Type: 
  Country: None (occurrence: None)
  Receive Date: 20080605
  Receipt Date: 20080524
  Transmission Date: 20081010
  Serious: Yes (Hospitalization, Other)
  Sender: FDA-Public Use
  Company Number: PHHO2008US06923

PATIENT
  Sex: Male
  Weight: 97.2 kg

DRUGS (4)
  1. STI571/CGP57148B T35717+CAPS [Suspect]
     Indication: OLIGODENDROGLIOMA
     Dosage: 300 MG, BID
     Route: 048
     Dates: start: 20080502, end: 20080508
  2. ATIVAN [Suspect]
  3. DECADRON [Suspect]
  4. KEPPRA [Suspect]

REACTIONS (6)
  - BRAIN OEDEMA [None]
  - DEHYDRATION [None]
  - HICCUPS [None]
  - NAUSEA [None]
  - SOMNOLENCE [None]
  - VOMITING [None]
